FAERS Safety Report 9175218 (Version 1)
Quarter: 2013Q1

REPORT INFORMATION
  Report Type: Spontaneous
  Country: US (occurrence: US)
  Receive Date: 20130320
  Receipt Date: 20130320
  Transmission Date: 20140127
  Serious: Yes (Hospitalization)
  Sender: FDA-Public Use
  Company Number: US-BAYER-2013-034127

PATIENT
  Age: 51 Year
  Sex: Female
  Weight: 78 kg

DRUGS (4)
  1. ALEVE [Suspect]
  2. IMITREX [Suspect]
     Indication: MIGRAINE
  3. TOLECTIN [Suspect]
     Indication: ANTIINFLAMMATORY THERAPY
     Dosage: UNK
     Dates: start: 1992
  4. LORTAB [Concomitant]
     Indication: PAIN
     Dosage: 10/500 MG, 4X/DAY

REACTIONS (2)
  - Hypersensitivity [Unknown]
  - Ear discomfort [Unknown]
